FAERS Safety Report 4732489-2 (Version None)
Quarter: 2005Q3

REPORT INFORMATION
  Report Type: 
  Country: None (occurrence: None)
  Receive Date: 20050803
  Receipt Date: 20030203
  Transmission Date: 20060218
  Serious: Yes (Death)
  Sender: FDA-Public Use
  Company Number: US-GLAXOSMITHKLINE-A0395161A

PATIENT
  Age: 9 Year
  Sex: Male

DRUGS (3)
  1. SEREVENT [Suspect]
     Indication: ASTHMA
     Dosage: 2PUFF TWICE PER DAY
     Route: 055
     Dates: start: 19990601, end: 20021123
  2. FLOVENT [Concomitant]
  3. ALBUTEROL [Concomitant]

REACTIONS (2)
  - DYSPNOEA [None]
  - RESPIRATORY ARREST [None]
